FAERS Safety Report 4356977-6 (Version None)
Quarter: 2004Q2

REPORT INFORMATION
  Report Type: 
  Country: None (occurrence: None)
  Receive Date: 20040507
  Receipt Date: 20040416
  Transmission Date: 20050107
  Serious: Yes (Other)
  Sender: FDA-Public Use
  Company Number: USA040465185

PATIENT
  Age: 31 Year
  Sex: Male

DRUGS (3)
  1. ZYPREXA [Suspect]
     Indication: SCHIZOAFFECTIVE DISORDER
     Dosage: 20 MG
  2. RISPERDAL [Concomitant]
  3. WELLBUTRIN [Concomitant]

REACTIONS (1)
  - LEUKAEMIA [None]
